FAERS Safety Report 6645599-X (Version None)
Quarter: 2010Q1

REPORT INFORMATION
  Report Type: 
  Country: None (occurrence: None)
  Receive Date: 20100319
  Receipt Date: 20100319
  Transmission Date: 20100710
  Serious: No
  Sender: FDA-Public Use
  Company Number: None

PATIENT
  Sex: Male
  Weight: 90.7194 kg

DRUGS (4)
  1. LIPITOR [Suspect]
     Indication: BLOOD TRIGLYCERIDES INCREASED
     Dates: start: 20030601, end: 20091130
  2. LIPITOR [Suspect]
     Indication: HYPERLIPIDAEMIA
     Dates: start: 20030601, end: 20091130
  3. NIASPAN [Suspect]
     Indication: BLOOD TRIGLYCERIDES INCREASED
     Dates: start: 20040901, end: 20091130
  4. NIASPAN [Suspect]
     Indication: HYPERLIPIDAEMIA
     Dates: start: 20040901, end: 20091130

REACTIONS (6)
  - ABNORMAL SLEEP-RELATED EVENT [None]
  - HYPOTONIA [None]
  - LETHARGY [None]
  - MEMORY IMPAIRMENT [None]
  - MUSCLE SPASMS [None]
  - NIGHTMARE [None]
